FAERS Safety Report 20507465 (Version 1)
Quarter: 2022Q1

REPORT INFORMATION
  Report Type: Spontaneous
  Country: US (occurrence: None)
  Receive Date: 20220222
  Receipt Date: 20220222
  Transmission Date: 20220424
  Serious: No
  Sender: FDA-Public Use
  Company Number: None

PATIENT
  Age: 63 Year
  Sex: Female
  Weight: 75.15 kg

DRUGS (15)
  1. IBRANCE [Suspect]
     Active Substance: PALBOCICLIB
     Indication: Breast cancer
     Dosage: OTHER FREQUENCY : QD FOR 21/28 DAYS;?
     Route: 048
     Dates: start: 20201222
  2. TRAMADOL [Concomitant]
     Active Substance: TRAMADOL
  3. VITAMIN A [Concomitant]
     Active Substance: VITAMIN A
  4. VITAMINS [Concomitant]
     Active Substance: VITAMINS
  5. CALCIUM\VITAMIN D [Concomitant]
     Active Substance: CALCIUM\VITAMIN D
  6. Norco 5-325mg [Concomitant]
  7. PROTONIX [Concomitant]
     Active Substance: PANTOPRAZOLE SODIUM
  8. HYDROCHLOROTHIAZIDE [Concomitant]
     Active Substance: HYDROCHLOROTHIAZIDE
  9. AZITHROMYCIN [Concomitant]
     Active Substance: AZITHROMYCIN
  10. PREDNISONE [Concomitant]
     Active Substance: PREDNISONE
  11. LETROZOLE [Concomitant]
     Active Substance: LETROZOLE
  12. VENTOLIN HFA [Concomitant]
     Active Substance: ALBUTEROL SULFATE
  13. Cyclobenzaprine 7.5mg [Concomitant]
  14. Vitamin E 180mg [Concomitant]
  15. Prochlorperazine 10mg [Concomitant]

REACTIONS (1)
  - Dizziness [None]

NARRATIVE: CASE EVENT DATE: 20220222
